FAERS Safety Report 4836135-9 (Version None)
Quarter: 2005Q4

REPORT INFORMATION
  Report Type: 
  Country: None (occurrence: None)
  Receive Date: 20051123
  Receipt Date: 20050329
  Transmission Date: 20060501
  Serious: Yes (Hospitalization)
  Sender: FDA-Public Use
  Company Number: PHHO2005US05118

PATIENT
  Age: 49 Year
  Sex: Female
  Weight: 57.4 kg

DRUGS (7)
  1. RAD001A [Suspect]
     Indication: RENAL AND PANCREAS TRANSPLANT
     Dosage: 2 MG, BID
     Route: 048
     Dates: start: 20041022, end: 20050802
  2. LISINOPRIL [Concomitant]
  3. PREDNISONE [Concomitant]
     Indication: RENAL TRANSPLANT
     Dosage: 7.5 MG, QD
     Route: 048
     Dates: start: 20030624
  4. CARVEDILOL [Concomitant]
  5. SUDAFED 12 HOUR [Suspect]
  6. NEORAL [Suspect]
     Indication: RENAL AND PANCREAS TRANSPLANT
     Dosage: 75 MG, BID
     Dates: start: 20010416, end: 20050401
  7. NEORAL [Suspect]
     Dosage: 75 MG, BID
     Route: 048
     Dates: start: 20050428, end: 20050731

REACTIONS (9)
  - BLOOD CREATININE INCREASED [None]
  - DRUG ADMINISTRATION ERROR [None]
  - HYPERTENSION [None]
  - HYPERTENSIVE CRISIS [None]
  - PYELOCALIECTASIS [None]
  - RENAL ARTERY STENOSIS [None]
  - RENAL IMPAIRMENT [None]
  - THERAPEUTIC AGENT TOXICITY [None]
  - WHITE BLOOD CELL COUNT INCREASED [None]
